FAERS Safety Report 9010568 (Version 1)
Quarter: 2013Q1

REPORT INFORMATION
  Report Type: Spontaneous
  Country: AR (occurrence: AR)
  Receive Date: 20130111
  Receipt Date: 20130111
  Transmission Date: 20140127
  Serious: Yes (Hospitalization)
  Sender: FDA-Public Use
  Company Number: AR-ELI_LILLY_AND_COMPANY-AR201301003392

PATIENT
  Age: 34 Year
  Sex: Female

DRUGS (7)
  1. CYCLOSERINE [Suspect]
     Indication: TUBERCULOSIS
  2. ETHIONAMIDE [Concomitant]
  3. MOXIFLOXACIN [Concomitant]
  4. PARA-AMINOSALICYLIC ACID [Concomitant]
  5. LEVOFLOXACIN [Concomitant]
  6. CAPREOMYCIN [Concomitant]
  7. LINEZOLID [Concomitant]

REACTIONS (2)
  - Drug reaction with eosinophilia and systemic symptoms [Recovered/Resolved]
  - Hepatitis toxic [None]
